FAERS Safety Report 18090036 (Version 1)
Quarter: 2020Q3

REPORT INFORMATION
  Report Type: Spontaneous
  Country: US (occurrence: US)
  Receive Date: 20200730
  Receipt Date: 20200730
  Transmission Date: 20201103
  Serious: No
  Sender: FDA-Public Use
  Company Number: US-AMGEN-USASP2020122001

PATIENT
  Age: 64 Year
  Sex: Female

DRUGS (5)
  1. MULTIVITAMIN [PYRIDOXINE HYDROCHLORIDE;RETINOL;RIBOFLAVIN;VITAMIN B1 N [Concomitant]
  2. METHOTREXATE. [Concomitant]
     Active Substance: METHOTREXATE
  3. OTEZLA [Suspect]
     Active Substance: APREMILAST
     Indication: PSORIATIC ARTHROPATHY
     Dosage: 30 MILLIGRAM, BID
     Route: 048
     Dates: start: 20200703
  4. FOLIC ACID. [Concomitant]
     Active Substance: FOLIC ACID
  5. CELEBREX [Concomitant]
     Active Substance: CELECOXIB

REACTIONS (2)
  - Diarrhoea [Not Recovered/Not Resolved]
  - Headache [Not Recovered/Not Resolved]

NARRATIVE: CASE EVENT DATE: 202007
